FAERS Safety Report 6038770-1 (Version None)
Quarter: 2009Q1

REPORT INFORMATION
  Report Type: 
  Country: None (occurrence: None)
  Receive Date: 20090115
  Receipt Date: 20080320
  Transmission Date: 20090719
  Serious: No
  Sender: FDA-Public Use
  Company Number: US-ABBOTT-08P-163-0443385-00

PATIENT
  Sex: Male
  Weight: 71.732 kg

DRUGS (9)
  1. ADVICOR [Suspect]
     Indication: HIGH DENSITY LIPOPROTEIN DECREASED
     Dosage: 500/20MG
     Route: 048
     Dates: start: 20080101
  2. ADVICOR [Suspect]
     Indication: LOW DENSITY LIPOPROTEIN INCREASED
  3. CLOPIDOGREL [Concomitant]
     Indication: THROMBOSIS
     Route: 048
     Dates: start: 20040101
  4. RAMIPRIL [Concomitant]
     Indication: HYPERTENSION
     Route: 048
  5. VICODIN [Concomitant]
     Indication: DRUG USE FOR UNKNOWN INDICATION
     Route: 048
  6. FUROSEMIDE [Concomitant]
     Indication: CARDIAC FAILURE CONGESTIVE
     Route: 048
  7. ACETYLSALICYLIC ACID SRT [Concomitant]
     Indication: DRUG USE FOR UNKNOWN INDICATION
     Route: 048
  8. METOPROLOL TARTRATE [Concomitant]
     Indication: HYPERTENSION
     Route: 048
  9. TIOTROPIUM BROMIDE [Concomitant]
     Indication: EMPHYSEMA
     Route: 055

REACTIONS (1)
  - FLUSHING [None]
